FAERS Safety Report 5224070-6 (Version None)
Quarter: 2007Q1

REPORT INFORMATION
  Report Type: 
  Country: None (occurrence: None)
  Receive Date: 20070130
  Receipt Date: 20070122
  Transmission Date: 20070707
  Serious: Yes (Congenital Anomaly)
  Sender: FDA-Public Use
  Company Number: HQWYE160122JAN07

PATIENT
  Sex: Male

DRUGS (2)
  1. AVLOCARDYL [Suspect]
     Indication: MIGRAINE
     Dosage: UNSPECIFIED
     Route: 064
     Dates: start: 20050901, end: 20051101
  2. RIVOTRIL [Suspect]
     Route: 064
     Dates: start: 20050901, end: 20050901

REACTIONS (2)
  - DRUG EXPOSURE DURING PREGNANCY [None]
  - EAR MALFORMATION [None]
